FAERS Safety Report 16782182 (Version 1)
Quarter: 2019Q3

REPORT INFORMATION
  Report Type: Report from Study
  Country: DE (occurrence: DE)
  Receive Date: 20190906
  Receipt Date: 20190906
  Transmission Date: 20191005
  Serious: Yes (Other)
  Sender: FDA-Public Use
  Company Number: DE-NAPPMUNDI-GBR-2019-0069841

PATIENT
  Age: 40 Year
  Sex: Female

DRUGS (10)
  1. OCRELIZUMAB. [Suspect]
     Active Substance: OCRELIZUMAB
     Indication: SECONDARY PROGRESSIVE MULTIPLE SCLEROSIS
     Dosage: 600 MG, UNK
     Route: 042
     Dates: start: 20190508
  2. FAMPRIDINE [Suspect]
     Active Substance: DALFAMPRIDINE
     Indication: PRODUCT USED FOR UNKNOWN INDICATION
     Route: 065
     Dates: start: 20190617, end: 20190618
  3. DEKRISTOL [Concomitant]
     Active Substance: CHOLECALCIFEROL
     Dosage: 20000 IU, QOD
     Route: 065
  4. QLAIRA [Concomitant]
     Active Substance: DIENOGEST\ESTRADIOL VALERATE
     Dosage: UNK
  5. OCRELIZUMAB. [Suspect]
     Active Substance: OCRELIZUMAB
     Dosage: 300 MG, UNK
     Route: 042
     Dates: start: 20180920, end: 20180920
  6. DRONABINOL. [Concomitant]
     Active Substance: DRONABINOL
     Dosage: 9-11 GTT 1 [AS NEEDED]
     Route: 065
  7. CARBAMAZEPIN [Concomitant]
     Active Substance: CARBAMAZEPINE
     Dosage: 300 MG, DAILY
     Route: 065
  8. BUPRENORPHINE. [Suspect]
     Active Substance: BUPRENORPHINE
     Indication: TRIGEMINAL NEURALGIA
     Dosage: UNK
     Route: 065
     Dates: start: 20190805
  9. OCRELIZUMAB. [Suspect]
     Active Substance: OCRELIZUMAB
     Dosage: 300 MG, UNK
     Route: 042
     Dates: start: 20181009
  10. BACLOFEN. [Concomitant]
     Active Substance: BACLOFEN
     Dosage: 60 MG, DAILY (1-1-2-2)
     Route: 065

REACTIONS (10)
  - Trigeminal neuralgia [Recovered/Resolved]
  - Headache [Not Recovered/Not Resolved]
  - Rib fracture [Recovered/Resolved]
  - Cough [Recovered/Resolved]
  - Fall [Unknown]
  - Facial pain [Recovered/Resolved]
  - Nausea [Recovered/Resolved]
  - Aphonia [Recovered/Resolved]
  - Fatigue [Recovered/Resolved]
  - Vomiting [Recovered/Resolved]

NARRATIVE: CASE EVENT DATE: 20181011
